FAERS Safety Report 14372485 (Version 3)
Quarter: 2018Q1

REPORT INFORMATION
  Report Type: Report from Study
  Country: US (occurrence: US)
  Receive Date: 20180110
  Receipt Date: 20180122
  Transmission Date: 20180509
  Serious: Yes (Hospitalization)
  Sender: FDA-Public Use
  Company Number: US-ACTELION-A-US2017-164350

PATIENT
  Age: 75 Year
  Sex: Female
  Weight: 60.32 kg

DRUGS (3)
  1. ADCIRCA [Concomitant]
     Active Substance: TADALAFIL
  2. LETAIRIS [Concomitant]
     Active Substance: AMBRISENTAN
  3. VELETRI [Suspect]
     Active Substance: EPOPROSTENOL
     Indication: PULMONARY HYPERTENSION
     Dosage: 19 NG/KG, PER MIN
     Route: 042

REACTIONS (11)
  - Oedema mouth [Unknown]
  - Eating disorder [Unknown]
  - Vomiting [Unknown]
  - Swelling [Unknown]
  - Diarrhoea [Unknown]
  - Memory impairment [Unknown]
  - Dyspnoea [Unknown]
  - Oedema peripheral [Unknown]
  - General physical health deterioration [Unknown]
  - Decreased appetite [Unknown]
  - Fluid overload [Unknown]
